FAERS Safety Report 24382831 (Version 4)
Quarter: 2024Q4

REPORT INFORMATION
  Report Type: Spontaneous
  Country: FR (occurrence: FR)
  Receive Date: 20241001
  Receipt Date: 20241222
  Transmission Date: 20250115
  Serious: Yes (Hospitalization, Other)
  Sender: AUROBINDO
  Company Number: FR-AFSSAPS-TO2024001192

PATIENT
  Age: 83 Year
  Sex: Male

DRUGS (11)
  1. AZACITIDINE [Suspect]
     Active Substance: AZACITIDINE
     Indication: Acute myeloid leukaemia
     Dosage: 1 DOSAGE FORM, CYCLICAL
     Route: 058
     Dates: start: 20240521, end: 202406
  2. POSACONAZOLE [Suspect]
     Active Substance: POSACONAZOLE
     Indication: Fungal infection
     Dosage: 300 MILLIGRAM, ONCE A DAY
     Route: 048
     Dates: start: 20240530
  3. VENETOCLAX [Suspect]
     Active Substance: VENETOCLAX
     Indication: Acute myeloid leukaemia
     Dosage: 400 MILLIGRAM
     Route: 042
     Dates: start: 20240521, end: 202406
  4. VENETOCLAX [Suspect]
     Active Substance: VENETOCLAX
     Indication: Haematological malignancy
     Dosage: 400 MILLIGRAM, ONCE A DAY
     Route: 048
     Dates: start: 20240521, end: 20240521
  5. VENETOCLAX [Suspect]
     Active Substance: VENETOCLAX
     Dosage: 100 MILLIGRAM
     Route: 048
     Dates: start: 20240524, end: 20240524
  6. VENETOCLAX [Suspect]
     Active Substance: VENETOCLAX
     Dosage: 400 MILLIGRAM (DAY 3)
     Route: 048
     Dates: start: 20240523, end: 20240523
  7. VENETOCLAX [Suspect]
     Active Substance: VENETOCLAX
     Dosage: DAY 1: 100 MG , 100 MGFIRST ADMIN DATE WAS 2024
     Route: 003
     Dates: start: 202406
  8. VENETOCLAX [Suspect]
     Active Substance: VENETOCLAX
     Dosage: DAY 2: 200 MG , 200 MG
     Route: 048
     Dates: start: 20240522, end: 20240522
  9. VENETOCLAX [Suspect]
     Active Substance: VENETOCLAX
     Dosage: 100 MILLIGRAM, ONCE A DAY
     Route: 048
     Dates: start: 20240521, end: 20240521
  10. PIPERACILLIN SODIUM\TAZOBACTAM SODIUM [Suspect]
     Active Substance: PIPERACILLIN SODIUM\TAZOBACTAM SODIUM
     Indication: Pyrexia
     Dosage: 4 GRAM(0.33 DAYS)
     Route: 042
     Dates: start: 20240606
  11. PIPERACILLIN SODIUM\TAZOBACTAM SODIUM [Concomitant]
     Active Substance: PIPERACILLIN SODIUM\TAZOBACTAM SODIUM
     Indication: Product used for unknown indication
     Dosage: UNK
     Route: 065

REACTIONS (12)
  - Vascular purpura [Recovering/Resolving]
  - Eczema [Recovered/Resolved]
  - Skin exfoliation [Unknown]
  - Toxic skin eruption [Unknown]
  - Dermatitis exfoliative generalised [Unknown]
  - Congenital aplasia [Unknown]
  - Anaemia [Unknown]
  - Blood immunoglobulin A increased [Unknown]
  - Erythema [Unknown]
  - Face oedema [Unknown]
  - Pyrexia [Unknown]
  - Rash maculo-papular [Unknown]

NARRATIVE: CASE EVENT DATE: 20240101
